FAERS Safety Report 21952637 (Version 1)
Quarter: 2023Q1

REPORT INFORMATION
  Report Type: Report from Study
  Country: US (occurrence: US)
  Receive Date: 20230203
  Receipt Date: 20230203
  Transmission Date: 20230417
  Serious: Yes (Hospitalization)
  Sender: FDA-Public Use
  Company Number: US-EXELIXIS-CABO-22052002

PATIENT
  Age: 56 Year
  Sex: Male
  Weight: 92.971 kg

DRUGS (4)
  1. CABOMETYX [Suspect]
     Active Substance: CABOZANTINIB S-MALATE
     Indication: Renal cell carcinoma
     Dosage: 40 MG, QD
     Route: 048
  2. GAS-X [Concomitant]
     Active Substance: DIMETHICONE
  3. LYRICA [Concomitant]
     Active Substance: PREGABALIN
  4. SENOKOT [Concomitant]
     Active Substance: SENNOSIDES

REACTIONS (4)
  - Diarrhoea [Recovering/Resolving]
  - Hypophagia [Recovering/Resolving]
  - Constipation [Recovering/Resolving]
  - Oedema peripheral [Recovering/Resolving]

NARRATIVE: CASE EVENT DATE: 20220501
